FAERS Safety Report 14213049 (Version 1)
Quarter: 2017Q4

REPORT INFORMATION
  Report Type: Spontaneous
  Country: FR (occurrence: FR)
  Receive Date: 20171122
  Receipt Date: 20171122
  Transmission Date: 20180321
  Serious: Yes (Disabling, Other)
  Sender: FDA-Public Use
  Company Number: FR-MERCK KGAA-2034836

PATIENT
  Sex: Female

DRUGS (1)
  1. NOVOTHYROX [Suspect]
     Active Substance: LEVOTHYROXINE SODIUM
     Indication: PRODUCT USED FOR UNKNOWN INDICATION

REACTIONS (13)
  - Skin necrosis [Recovered/Resolved]
  - Dysstasia [Recovered/Resolved]
  - Hypertension [Recovered/Resolved]
  - Pulmonary oedema [Recovered/Resolved]
  - Gait disturbance [Recovered/Resolved]
  - Phlebitis [Recovered/Resolved]
  - Pain [Recovered/Resolved]
  - Arthralgia [Recovered/Resolved]
  - Blood thyroid stimulating hormone increased [Recovering/Resolving]
  - Palpitations [Recovered/Resolved]
  - Fatigue [Recovered/Resolved]
  - Vertigo [Recovered/Resolved]
  - Generalised oedema [Recovered/Resolved]
